FAERS Safety Report 6193488-X (Version None)
Quarter: 2009Q2

REPORT INFORMATION
  Report Type: 
  Country: None (occurrence: None)
  Receive Date: 20090518
  Receipt Date: 20090507
  Transmission Date: 20091009
  Serious: Yes (Hospitalization)
  Sender: FDA-Public Use
  Company Number: US-BIOGENIDEC-2009BI007571

PATIENT
  Age: 36 Year
  Sex: Female

DRUGS (9)
  1. TYSABRI [Suspect]
     Indication: CROHN'S DISEASE
     Route: 042
     Dates: start: 20090116
  2. IRON DEXTRAN [Concomitant]
     Route: 042
     Dates: start: 20090219
  3. ACIPHEX [Concomitant]
  4. ASACOL [Concomitant]
  5. SYNTHROID [Concomitant]
  6. CYMBALTA [Concomitant]
  7. PREMPRO [Concomitant]
  8. ELAVIL [Concomitant]
  9. XANAX [Concomitant]

REACTIONS (6)
  - CYTOMEGALOVIRUS INFECTION [None]
  - EPSTEIN-BARR VIRUS INFECTION [None]
  - FACIAL PALSY [None]
  - IMMUNE SYSTEM DISORDER [None]
  - INFECTIOUS MONONUCLEOSIS [None]
  - ORAL HERPES [None]
